FAERS Safety Report 6535874-1 (Version None)
Quarter: 2010Q1

REPORT INFORMATION
  Report Type: 
  Country: None (occurrence: None)
  Receive Date: 20100106
  Receipt Date: 20091006
  Transmission Date: 20100710
  Serious: No
  Sender: FDA-Public Use
  Company Number: 2009011197

PATIENT
  Sex: Male

DRUGS (1)
  1. FENTORA [Suspect]
     Indication: ARTHRITIS
     Dosage: BU
     Route: 002

REACTIONS (2)
  - DRUG PRESCRIBING ERROR [None]
  - ORAL DISCOMFORT [None]
